FAERS Safety Report 6084789-4 (Version None)
Quarter: 2009Q1

REPORT INFORMATION
  Report Type: 
  Country: None (occurrence: None)
  Receive Date: 20090217
  Receipt Date: 20090206
  Transmission Date: 20090719
  Serious: Yes (Hospitalization)
  Sender: FDA-Public Use
  Company Number: 170360

PATIENT
  Age: 29 Year
  Sex: Female

DRUGS (3)
  1. LIDOCAINE HCL       INJ, USP (LIDOCAINE) [Suspect]
     Indication: DYSPEPSIA
     Dosage: 3 G, ORAL
     Route: 048
     Dates: start: 20061201, end: 20061201
  2. (ANTACID /00082501/) [Concomitant]
  3. DOXYCYCLINE [Concomitant]

REACTIONS (9)
  - AGITATION [None]
  - BODY TEMPERATURE INCREASED [None]
  - CONTUSION [None]
  - CONVULSION [None]
  - DIZZINESS [None]
  - INCORRECT DOSE ADMINISTERED [None]
  - MUSCLE TWITCHING [None]
  - RESPIRATORY RATE INCREASED [None]
  - SINUS TACHYCARDIA [None]
